FAERS Safety Report 12368062 (Version 1)
Quarter: 2016Q2

REPORT INFORMATION
  Report Type: Spontaneous
  Country: CH (occurrence: CH)
  Receive Date: 20160513
  Receipt Date: 20160513
  Transmission Date: 20160815
  Serious: Yes (Hospitalization, Other)
  Sender: FDA-Public Use
  Company Number: CH-BAYER-2016-086664

PATIENT
  Age: 81 Year
  Sex: Female
  Weight: 53 kg

DRUGS (20)
  1. LISINOPRIL. [Suspect]
     Active Substance: LISINOPRIL
     Indication: ESSENTIAL HYPERTENSION
     Route: 048
     Dates: end: 20160407
  2. TORASEMID [Suspect]
     Active Substance: TORSEMIDE
     Dosage: 5 MG, QD
     Route: 048
  3. TIMOPTIC [Concomitant]
     Active Substance: TIMOLOL MALEATE
     Route: 047
  4. CEFTRIAXON [Suspect]
     Active Substance: CEFTRIAXONE
     Indication: CHRONIC OBSTRUCTIVE PULMONARY DISEASE
     Route: 041
     Dates: start: 20160118, end: 20160126
  5. CONDROSULF [Concomitant]
     Active Substance: CHONDROITIN SULFATE (CHICKEN)
     Route: 048
     Dates: end: 20160414
  6. UNIFYL CONTINUS 200 MG TABLETTEN RETARD [Suspect]
     Active Substance: THEOPHYLLINE ANHYDROUS
     Indication: CHRONIC OBSTRUCTIVE PULMONARY DISEASE
     Dosage: 200 MG, QD
     Route: 048
     Dates: start: 20160129, end: 20160414
  7. PANTOPRAZOLE [Suspect]
     Active Substance: PANTOPRAZOLE SODIUM
     Dosage: 40 MG, QD
     Route: 048
     Dates: start: 20160117, end: 20160414
  8. AMLODIPIN [Suspect]
     Active Substance: AMLODIPINE BESYLATE
     Indication: ESSENTIAL HYPERTENSION
     Dosage: 5 MG, QD
     Route: 048
  9. CLEXANE [Suspect]
     Active Substance: ENOXAPARIN SODIUM
     Dosage: 20 MG, QD
     Route: 058
     Dates: start: 20160117, end: 20160217
  10. KLACID [Suspect]
     Active Substance: CLARITHROMYCIN
     Indication: CHRONIC OBSTRUCTIVE PULMONARY DISEASE
     Route: 041
     Dates: start: 20160118, end: 20160121
  11. ASPIRIN CARDIO [Suspect]
     Active Substance: ASPIRIN
     Dosage: 100 MG, QD
     Route: 048
     Dates: end: 20160414
  12. SUPRADYN [MINERALS NOS,VITAMINS NOS] [Suspect]
     Active Substance: ASCORBIC ACID\MINERALS\VITAMINS
     Route: 048
     Dates: end: 20160414
  13. MEFENAMIC-ACID [Suspect]
     Active Substance: MEFENAMIC ACID
     Dosage: 1 DF, UNK
     Route: 048
  14. LASIX [Suspect]
     Active Substance: FUROSEMIDE
     Route: 041
     Dates: start: 20160117, end: 20160204
  15. SPIRIVA [Concomitant]
     Active Substance: TIOTROPIUM BROMIDE MONOHYDRATE
     Indication: CHRONIC OBSTRUCTIVE PULMONARY DISEASE
     Route: 055
  16. ACCURETIC [Suspect]
     Active Substance: HYDROCHLOROTHIAZIDE\QUINAPRIL HYDROCHLORIDE
     Indication: ESSENTIAL HYPERTENSION
     Dosage: 10 MG, QD
     Route: 048
     Dates: end: 20160414
  17. SIMVASTATIN. [Suspect]
     Active Substance: SIMVASTATIN
     Indication: DYSLIPIDAEMIA
     Dosage: 20 MG, QD
     Route: 048
  18. COVERSUM [Suspect]
     Active Substance: PERINDOPRIL
     Indication: ESSENTIAL HYPERTENSION
     Route: 048
     Dates: end: 20160217
  19. SYMBICORT [Concomitant]
     Active Substance: BUDESONIDE\FORMOTEROL FUMARATE DIHYDRATE
     Indication: CHRONIC OBSTRUCTIVE PULMONARY DISEASE
     Route: 055
  20. PREDNISON [Concomitant]
     Active Substance: PREDNISONE
     Indication: CHRONIC OBSTRUCTIVE PULMONARY DISEASE
     Route: 048
     Dates: start: 20160117, end: 20160217

REACTIONS (9)
  - Anaemia [Not Recovered/Not Resolved]
  - Ecchymosis [Not Recovered/Not Resolved]
  - Conjunctival haemorrhage [Not Recovered/Not Resolved]
  - Bone marrow failure [Not Recovered/Not Resolved]
  - Leukopenia [Not Recovered/Not Resolved]
  - Aplastic anaemia [Not Recovered/Not Resolved]
  - Pancytopenia [Not Recovered/Not Resolved]
  - Agranulocytosis [Not Recovered/Not Resolved]
  - Thrombocytopenic purpura [Not Recovered/Not Resolved]

NARRATIVE: CASE EVENT DATE: 20160121
